FAERS Safety Report 5754510-5 (Version None)
Quarter: 2008Q2

REPORT INFORMATION
  Report Type: 
  Country: None (occurrence: None)
  Receive Date: 20080530
  Receipt Date: 20080219
  Transmission Date: 20081010
  Serious: No
  Sender: FDA-Public Use
  Company Number: US-BOEHRINGER INGELHEIM GMBH, GERMANY-2007-BP-25243BP

PATIENT
  Sex: Female

DRUGS (5)
  1. COMBIVENT [Suspect]
     Indication: OXYGEN SATURATION DECREASED
     Route: 055
     Dates: start: 20070901
  2. NEUMANTIX [Concomitant]
  3. CENTRUM SILVER [Concomitant]
  4. VITAMIN E [Concomitant]
  5. PALGIC [Concomitant]

REACTIONS (3)
  - COUGH [None]
  - PAIN [None]
  - THROAT IRRITATION [None]
